FAERS Safety Report 21302966 (Version 4)
Quarter: 2025Q3

REPORT INFORMATION
  Report Type: Report from Study
  Country: US (occurrence: US)
  Receive Date: 20220907
  Receipt Date: 20250710
  Transmission Date: 20251020
  Serious: Yes (Other)
  Sender: JAZZ
  Company Number: US-JAZZ-2022-US-028340

PATIENT
  Sex: Female

DRUGS (10)
  1. EPIDIOLEX [Suspect]
     Active Substance: CANNABIDIOL
     Indication: Lennox-Gastaut syndrome
     Route: 048
  2. FOLIC ACID [Concomitant]
     Active Substance: FOLIC ACID
     Indication: Product used for unknown indication
  3. FOLIC ACID [Concomitant]
     Active Substance: FOLIC ACID
  4. FINTEPLA [Concomitant]
     Active Substance: FENFLURAMINE
     Indication: Product used for unknown indication
  5. NIACINAMIDE [Concomitant]
     Active Substance: NIACINAMIDE
     Indication: Product used for unknown indication
  6. NIACINAMIDE [Concomitant]
     Active Substance: NIACINAMIDE
  7. ONFI [Concomitant]
     Active Substance: CLOBAZAM
     Indication: Product used for unknown indication
  8. ONFI [Concomitant]
     Active Substance: CLOBAZAM
  9. VIMPAT [Concomitant]
     Active Substance: LACOSAMIDE
     Indication: Product used for unknown indication
  10. VIMPAT [Concomitant]
     Active Substance: LACOSAMIDE

REACTIONS (8)
  - Seizure [Unknown]
  - Memory impairment [Unknown]
  - Headache [Unknown]
  - Heart rate decreased [Unknown]
  - Dizziness [Unknown]
  - Confusional state [Unknown]
  - Depression [Unknown]
  - Nausea [Unknown]
